FAERS Safety Report 8239048-8 (Version None)
Quarter: 2012Q1

REPORT INFORMATION
  Report Type: 
  Country: None (occurrence: None)
  Receive Date: 20120327
  Receipt Date: 20120322
  Transmission Date: 20120608
  Serious: Yes (Death, Hospitalization)
  Sender: FDA-Public Use
  Company Number: GB-MERCK-1203GBR00086

PATIENT
  Age: 34 Year
  Sex: Female

DRUGS (10)
  1. ISENTRESS [Suspect]
     Route: 048
  2. ALLOPURINOL [Concomitant]
     Route: 065
  3. SULFAMETHOXAZOLE AND TRIMETHOPRIM [Concomitant]
     Route: 065
  4. LAMIVUDINE [Concomitant]
     Route: 065
  5. AZITHROMYCIN [Concomitant]
     Route: 065
  6. ATAZANAVIR [Concomitant]
     Route: 065
  7. DOXORUBICIN [Concomitant]
     Route: 065
  8. VINCRISTINE SULFATE [Concomitant]
     Route: 065
  9. PREDNISOLONE [Concomitant]
     Route: 065
  10. CYCLOPHOSPHAMIDE [Concomitant]
     Route: 065

REACTIONS (7)
  - TRAUMATIC INTRACRANIAL HAEMORRHAGE [None]
  - PNEUMONIA [None]
  - PULMONARY OEDEMA [None]
  - RENAL FAILURE ACUTE [None]
  - PANCYTOPENIA [None]
  - ENTEROCOCCAL BACTERAEMIA [None]
  - METABOLIC ACIDOSIS [None]
